FAERS Safety Report 4725685-1 (Version None)
Quarter: 2005Q3

REPORT INFORMATION
  Report Type: 
  Country: None (occurrence: None)
  Receive Date: 20050725
  Receipt Date: 20050713
  Transmission Date: 20060218
  Serious: Yes (Other)
  Sender: FDA-Public Use
  Company Number: 2005103200

PATIENT
  Age: 73 Year
  Sex: Female
  Weight: 88.4514 kg

DRUGS (7)
  1. CELEBREX [Suspect]
     Indication: ARTHRALGIA
  2. BEXTRA [Suspect]
     Indication: ARTHRALGIA
     Dosage: 20 MG (20 MG, 1 IN 1 D), ORAL
     Route: 048
     Dates: end: 20050601
  3. ALL OTHER THERAPEUTIC PRODUCTS (ALL OTHER THERAPEUTIC PRODUCTS) [Suspect]
     Indication: ARTHRALGIA
  4. ANTIHYPERTENSIVES (ANTIHYPERTENSIVES) [Concomitant]
  5. DIURETICS (DIURETICS) [Concomitant]
  6. ACETYLSALICYLIC ACID SRT [Concomitant]
  7. EFFEXOR XR [Concomitant]

REACTIONS (5)
  - BLOOD CHOLESTEROL INCREASED [None]
  - DRUG INEFFECTIVE [None]
  - HIGH DENSITY LIPOPROTEIN INCREASED [None]
  - SPINAL COLUMN STENOSIS [None]
  - STOMACH DISCOMFORT [None]
